FAERS Safety Report 17053581 (Version 3)
Quarter: 2019Q4

REPORT INFORMATION
  Report Type: Spontaneous
  Country: JP (occurrence: JP)
  Receive Date: 20191120
  Receipt Date: 20191223
  Transmission Date: 20200122
  Serious: Yes (Hospitalization, Disabling, Other)
  Sender: FDA-Public Use
  Company Number: JP-009507513-1911JPN001692J

PATIENT
  Age: 72 Year
  Sex: Male
  Weight: 51 kg

DRUGS (6)
  1. CARBOPLATIN. [Suspect]
     Active Substance: CARBOPLATIN
     Indication: NON-SMALL CELL LUNG CANCER
     Dosage: 500 MILLIGRAM, QW
     Route: 041
     Dates: start: 20190722, end: 20190722
  2. KEYTRUDA [Suspect]
     Active Substance: PEMBROLIZUMAB
     Indication: NON-SMALL CELL LUNG CANCER
     Dosage: 200 MILLIGRAM, Q3W
     Route: 041
     Dates: start: 20190722, end: 20190722
  3. ABRAXANE [Suspect]
     Active Substance: PACLITAXEL
     Indication: NON-SMALL CELL LUNG CANCER
     Dosage: 150 MILLIGRAM, QW
     Route: 041
     Dates: start: 20190722, end: 20190722
  4. INSULIN GLARGINE(GENETICAL RECOMBINATION) [Concomitant]
     Active Substance: INSULIN GLARGINE
     Dosage: UNK , QD (BEFORE SLEEP)
     Route: 065
     Dates: start: 20190717
  5. TRULICITY [Concomitant]
     Active Substance: DULAGLUTIDE
     Dosage: UNK, QW
     Route: 058
  6. HUMALOG [Concomitant]
     Active Substance: INSULIN LISPRO
     Dosage: UNK , TID(MORNING, NOON, EVENING)
     Route: 065
     Dates: start: 20190717

REACTIONS (1)
  - Neuropathy peripheral [Recovered/Resolved]

NARRATIVE: CASE EVENT DATE: 20190801
